FAERS Safety Report 4584801-5 (Version None)
Quarter: 2005Q1

REPORT INFORMATION
  Report Type: 
  Country: None (occurrence: None)
  Receive Date: 20050217
  Receipt Date: 20050202
  Transmission Date: 20050727
  Serious: Yes (Hospitalization, Other)
  Sender: FDA-Public Use
  Company Number: JP-JNJFOC-20040202728

PATIENT
  Sex: Male
  Weight: 80.7 kg

DRUGS (15)
  1. REMICADE [Suspect]
     Route: 041
     Dates: start: 20000215, end: 20000425
  2. REMICADE [Suspect]
     Route: 041
     Dates: start: 20000215, end: 20000425
  3. REMICADE [Suspect]
     Route: 041
     Dates: start: 20000215, end: 20000425
  4. REMICADE [Suspect]
     Indication: BEHCET'S SYNDROME
     Route: 041
     Dates: start: 20000215, end: 20000425
  5. CYCLOSPORINE [Suspect]
     Route: 049
     Dates: start: 19991006, end: 20010425
  6. CYCLOSPORINE [Suspect]
     Route: 049
     Dates: start: 19991006, end: 20010425
  7. CYCLOSPORINE [Suspect]
     Indication: DRUG USE FOR UNKNOWN INDICATION
     Route: 049
     Dates: start: 19991006, end: 20010425
  8. COLCHICINE [Concomitant]
     Route: 049
  9. GASTER D [Concomitant]
     Route: 049
  10. LOXONINE [Concomitant]
     Route: 049
  11. ALESION [Concomitant]
     Route: 049
  12. TIMOPTOL (0.5)% [Concomitant]
     Route: 047
  13. RESULA [Concomitant]
     Route: 047
  14. TRUSOPT (1%) [Concomitant]
     Route: 047
  15. FLUMETHOLON (0.1%) [Concomitant]
     Route: 047

REACTIONS (10)
  - ANGINA PECTORIS [None]
  - DRUG INTERACTION [None]
  - GLAUCOMA [None]
  - LUNG NEOPLASM MALIGNANT [None]
  - LYMPHADENOPATHY [None]
  - METASTATIC NEOPLASM [None]
  - NASOPHARYNGITIS [None]
  - NON-SMALL CELL LUNG CANCER STAGE IIIB [None]
  - PHARYNGOLARYNGEAL PAIN [None]
  - RHINORRHOEA [None]
